FAERS Safety Report 5025958-1 (Version None)
Quarter: 2006Q2

REPORT INFORMATION
  Report Type: 
  Country: None (occurrence: None)
  Receive Date: 20060614
  Receipt Date: 20060530
  Transmission Date: 20061013
  Serious: Yes (Other)
  Sender: FDA-Public Use
  Company Number: ESWYE667030MAY06

PATIENT
  Age: 44 Year
  Sex: Male

DRUGS (3)
  1. ENBREL [Suspect]
     Indication: PSORIATIC ARTHROPATHY
     Route: 058
     Dates: start: 20060101, end: 20060530
  2. RIFAMPIN AND ISONIAZID [Concomitant]
     Dosage: UNKNOWN
  3. INDOMETHACIN [Concomitant]
     Dosage: UNKNOWN

REACTIONS (2)
  - BLOOD PRESSURE ABNORMAL [None]
  - OEDEMA [None]
